FAERS Safety Report 9017348 (Version 1)
Quarter: 2013Q1

REPORT INFORMATION
  Report Type: Spontaneous
  Country: US (occurrence: US)
  Receive Date: 20130117
  Receipt Date: 20130117
  Transmission Date: 20140127
  Serious: No
  Sender: FDA-Public Use
  Company Number: US-PFIZER INC-2013018579

PATIENT
  Sex: Male

DRUGS (3)
  1. LYRICA [Suspect]
     Dosage: 150 MG, 2X/DAY (3 TABLETS OF 50 MG TWICE A DAY)
  2. GABAPENTIN [Suspect]
  3. CELEXA [Suspect]

REACTIONS (1)
  - Drug ineffective [Unknown]
